FAERS Safety Report 6048226-8 (Version None)
Quarter: 2009Q1

REPORT INFORMATION
  Report Type: 
  Country: None (occurrence: None)
  Receive Date: 20090123
  Receipt Date: 20090109
  Transmission Date: 20090719
  Serious: Yes (Hospitalization, Disabling, Other)
  Sender: FDA-Public Use
  Company Number: PHHO2007MX01595

PATIENT
  Sex: Female

DRUGS (1)
  1. DIOVAN HCT [Suspect]
     Indication: HYPERTENSION
     Dosage: 1 TABLET (80/12.5MG)/DAY
     Route: 048
     Dates: start: 20050301

REACTIONS (9)
  - FALL [None]
  - IMMUNOSUPPRESSION [None]
  - INFECTION [None]
  - INFLUENZA [None]
  - JOINT INJURY [None]
  - KNEE OPERATION [None]
  - SURGERY [None]
  - TRANSFUSION [None]
  - WOUND INFECTION [None]
